FAERS Safety Report 4924411-0 (Version None)
Quarter: 2006Q1

REPORT INFORMATION
  Report Type: 
  Country: None (occurrence: None)
  Receive Date: 20060221
  Receipt Date: 20060208
  Transmission Date: 20060701
  Serious: Yes (Other)
  Sender: FDA-Public Use
  Company Number: 2005169247

PATIENT
  Sex: Male
  Weight: 99.7913 kg

DRUGS (1)
  1. VIAGRA [Suspect]
     Indication: ERECTILE DYSFUNCTION
     Dosage: 50 MG (50 MG)

REACTIONS (6)
  - ASTHMA [None]
  - DRUG INEFFECTIVE [None]
  - EJACULATION DISORDER [None]
  - HYPERTENSION [None]
  - POST PROCEDURAL COMPLICATION [None]
  - URINARY INCONTINENCE [None]
